FAERS Safety Report 7888609-4 (Version None)
Quarter: 2011Q4

REPORT INFORMATION
  Report Type: 
  Country: None (occurrence: None)
  Receive Date: 20111103
  Receipt Date: 20111101
  Transmission Date: 20120403
  Serious: Yes (Other)
  Sender: FDA-Public Use
  Company Number: US-PFIZER INC-2011267565

PATIENT
  Sex: Female

DRUGS (1)
  1. LYRICA [Suspect]
     Indication: NEUROPATHY PERIPHERAL
     Dosage: UNKNOWN DOSE TWO TIMES A DAY
     Dates: start: 20110907

REACTIONS (4)
  - DIPLOPIA [None]
  - GAIT DISTURBANCE [None]
  - EYE DISORDER [None]
  - IMPAIRED DRIVING ABILITY [None]
